FAERS Safety Report 21065515 (Version 1)
Quarter: 2022Q3

REPORT INFORMATION
  Report Type: Spontaneous
  Country: CN (occurrence: CN)
  Receive Date: 20220711
  Receipt Date: 20220711
  Transmission Date: 20221027
  Serious: Yes (Other)
  Sender: FDA-Public Use
  Company Number: CN-NOVARTISPH-NVSC2022CN156820

PATIENT
  Age: 59 Year
  Sex: Male

DRUGS (5)
  1. CARBAMAZEPINE [Suspect]
     Active Substance: CARBAMAZEPINE
     Indication: Epilepsy
     Dosage: 0.2 G, QD
     Route: 048
  2. CARBAMAZEPINE [Suspect]
     Active Substance: CARBAMAZEPINE
     Dosage: 0.2 G, BID
     Route: 048
  3. IMIPENEM [Concomitant]
     Active Substance: IMIPENEM
     Indication: Brain abscess
     Dosage: UNK
     Route: 065
  4. CILASTATIN [Concomitant]
     Active Substance: CILASTATIN
     Indication: Brain abscess
     Dosage: 1 G, Q8H
     Route: 042
  5. SULFAMETHOXAZOLE [Concomitant]
     Active Substance: SULFAMETHOXAZOLE
     Indication: Brain abscess
     Dosage: UNK, TID (TRIMETHOPRIM 0.32G PLUS SULFAMETHOXAZOLE 1.6G)
     Route: 048

REACTIONS (3)
  - Epilepsy [Unknown]
  - Drug level decreased [Recovered/Resolved]
  - Metabolic disorder [Unknown]
